FAERS Safety Report 11432028 (Version 1)
Quarter: 2015Q3

REPORT INFORMATION
  Report Type: Spontaneous
  Country: CN (occurrence: CN)
  Receive Date: 20150828
  Receipt Date: 20150828
  Transmission Date: 20151125
  Serious: Yes (Hospitalization)
  Sender: FDA-Public Use
  Company Number: CN-JNJFOC-20150813394

PATIENT
  Age: 79 Year
  Sex: Male

DRUGS (3)
  1. RISPERDAL [Suspect]
     Active Substance: RISPERIDONE
     Indication: SENILE PSYCHOSIS
     Route: 048
     Dates: start: 20141030, end: 20141109
  2. RISPERDAL [Suspect]
     Active Substance: RISPERIDONE
     Indication: SENILE PSYCHOSIS
     Dosage: DOSE REDUCED TO 3/4 TABLET
     Route: 048
     Dates: start: 20141109
  3. RISPERDAL [Suspect]
     Active Substance: RISPERIDONE
     Indication: SENILE PSYCHOSIS
     Route: 048
     Dates: start: 20141009, end: 20141029

REACTIONS (10)
  - Oedema peripheral [Recovered/Resolved]
  - Syncope [Recovered/Resolved]
  - Bradyphrenia [Recovered/Resolved]
  - Tachypnoea [Recovered/Resolved]
  - Dyspnoea [Recovered/Resolved]
  - Chest discomfort [Recovered/Resolved]
  - Somnolence [Recovered/Resolved]
  - Agitation [Recovered/Resolved]
  - Wrong technique in product usage process [Unknown]
  - Palpitations [Recovered/Resolved]

NARRATIVE: CASE EVENT DATE: 20141107
